FAERS Safety Report 12297473 (Version 1)
Quarter: 2016Q2

REPORT INFORMATION
  Report Type: Spontaneous
  Country: US (occurrence: US)
  Receive Date: 20160422
  Receipt Date: 20160422
  Transmission Date: 20160815
  Serious: No
  Sender: FDA-Public Use
  Company Number: US-PERRIGO-16US000694

PATIENT
  Age: 10 Year
  Sex: Female
  Weight: 27.21 kg

DRUGS (2)
  1. CLOBETASOL PROPIONATE. [Suspect]
     Active Substance: CLOBETASOL PROPIONATE
     Indication: PSORIASIS
     Dosage: PEA SIZE AMOUNT, QD
     Route: 061
     Dates: start: 20151201, end: 20151215
  2. CLOBETASOL PROPIONATE. [Suspect]
     Active Substance: CLOBETASOL PROPIONATE
     Dosage: PEA SIZE AMOUNT, PRN
     Route: 061
     Dates: start: 20151216, end: 20160118

REACTIONS (3)
  - No adverse event [Recovered/Resolved]
  - Drug administered to patient of inappropriate age [Recovered/Resolved]
  - Wrong technique in product usage process [Recovered/Resolved]

NARRATIVE: CASE EVENT DATE: 201512
